FAERS Safety Report 7270287-9 (Version None)
Quarter: 2011Q1

REPORT INFORMATION
  Report Type: 
  Country: None (occurrence: None)
  Receive Date: 20110125
  Receipt Date: 20110125
  Transmission Date: 20110831
  Serious: Yes (Hospitalization, Disabling, Other)
  Sender: FDA-Public Use
  Company Number: None

PATIENT
  Age: 58 Year
  Sex: Female
  Weight: 48.9885 kg

DRUGS (1)
  1. BONIVA [Suspect]
     Indication: OSTEOPOROSIS
     Dosage: 1 PILL MONTHLY PO
     Route: 048
     Dates: start: 20100106, end: 20100501

REACTIONS (3)
  - PAIN [None]
  - MYELITIS [None]
  - HYPOAESTHESIA [None]
